FAERS Safety Report 14141571 (Version 3)
Quarter: 2017Q4

REPORT INFORMATION
  Report Type: Spontaneous
  Country: DE (occurrence: DE)
  Receive Date: 20171030
  Receipt Date: 20171218
  Transmission Date: 20180321
  Serious: Yes (Life-Threatening, Hospitalization, Other)
  Sender: FDA-Public Use
  Company Number: DE-GLENMARK PHARMACEUTICALS-2017GMK029377

PATIENT
  Age: 74 Year

DRUGS (3)
  1. POTASSIUM CHLORIDE. [Suspect]
     Active Substance: POTASSIUM CHLORIDE
     Dosage: 12 ML (800 MG POTASSIUM CHLORIDE; FLOW RATE OF 10 ML/H
     Route: 008
  2. POTASSIUM CHLORIDE. [Suspect]
     Active Substance: POTASSIUM CHLORIDE
     Indication: HYPOKALAEMIA
     Dosage: 10 ML/HR, 900 MG OF 7.45% (KCL)
     Route: 008
  3. ROPIVACAINE [Concomitant]
     Active Substance: ROPIVACAINE
     Indication: EPIDURAL ANALGESIA
     Dosage: 4 ML/HR, UNK
     Route: 008

REACTIONS (21)
  - Agitation [Unknown]
  - Respiratory depression [Unknown]
  - Anxiety [Unknown]
  - Drug administered in wrong device [Unknown]
  - Accidental exposure to product [Unknown]
  - Incorrect route of drug administration [Unknown]
  - Anal pruritus [Unknown]
  - Pain [Unknown]
  - Paraesthesia [Recovered/Resolved]
  - Loss of consciousness [Unknown]
  - Spinal cord paralysis [Recovered/Resolved]
  - Stress cardiomyopathy [Unknown]
  - Quadriplegia [Recovered/Resolved]
  - Tachycardia [Unknown]
  - Tracheal haemorrhage [Unknown]
  - Dyspnoea exertional [Unknown]
  - Pain in extremity [Unknown]
  - Hypertension [Unknown]
  - Abdominal pain upper [Unknown]
  - Pneumonia [Unknown]
  - Pruritus generalised [Unknown]
